FAERS Safety Report 8808930 (Version 1)
Quarter: 2012Q4

REPORT INFORMATION
  Report Type: 
  Country: US (occurrence: None)
  Receive Date: 20120920
  Receipt Date: 20120920
  Transmission Date: 20130627
  Serious: Yes (Other)
  Sender: FDA-Public Use
  Company Number: None

PATIENT
  Sex: Female

DRUGS (2)
  1. PENICILLIN [Suspect]
  2. VICODIN [Suspect]

REACTIONS (3)
  - Incorrect dose administered [None]
  - Wrong drug administered [None]
  - Drug dispensing error [None]
